FAERS Safety Report 10818232 (Version 1)
Quarter: 2015Q1

REPORT INFORMATION
  Report Type: Spontaneous
  Country: US (occurrence: US)
  Receive Date: 20150218
  Receipt Date: 20150218
  Transmission Date: 20150721
  Serious: Yes (Other)
  Sender: FDA-Public Use
  Company Number: US-PFIZER INC-2015061139

PATIENT
  Sex: Male

DRUGS (1)
  1. LOMOTIL [Suspect]
     Active Substance: ATROPINE SULFATE\DIPHENOXYLATE HYDROCHLORIDE
     Dosage: UNK

REACTIONS (8)
  - Hypothalamo-pituitary disorder [Unknown]
  - Neoplasm [Unknown]
  - Diarrhoea [Unknown]
  - Fistula [Unknown]
  - Dyspnoea [Unknown]
  - Myasthenia gravis [Unknown]
  - Cardiac disorder [Unknown]
  - Colon cancer [Unknown]
